FAERS Safety Report 17821605 (Version 1)
Quarter: 2020Q2

REPORT INFORMATION
  Report Type: Report from Study
  Country: CA (occurrence: CA)
  Receive Date: 20200525
  Receipt Date: 20200525
  Transmission Date: 20200714
  Serious: Yes (Other)
  Sender: FDA-Public Use
  Company Number: CA-TAKEDA-2020TUS023452

PATIENT
  Age: 22 Year
  Sex: Male

DRUGS (5)
  1. VEDOLIZUMAB [Suspect]
     Active Substance: VEDOLIZUMAB
     Indication: COLITIS ULCERATIVE
     Dosage: 300 MILLIGRAM
     Route: 042
     Dates: start: 20200127, end: 20200312
  2. PENTASA [Concomitant]
     Active Substance: MESALAMINE
     Dosage: UNK
     Dates: start: 20190601
  3. REMICADE [Concomitant]
     Active Substance: INFLIXIMAB
     Dosage: UNK UNK, Q8WEEKS
     Dates: start: 20190601
  4. PREDNISONE. [Concomitant]
     Active Substance: PREDNISONE
     Dosage: UNK
     Dates: start: 20190901
  5. REMICADE [Concomitant]
     Active Substance: INFLIXIMAB
     Dosage: 700 MILLIGRAM, Q4WEEKS

REACTIONS (1)
  - Colectomy [Unknown]
